FAERS Safety Report 8804758 (Version 2)
Quarter: 2012Q4

REPORT INFORMATION
  Report Type: 
  Country: US (occurrence: US)
  Receive Date: 20120924
  Receipt Date: 20120927
  Transmission Date: 20130627
  Serious: Yes (Death, Hospitalization, Other)
  Sender: FDA-Public Use
  Company Number: US-ROCHE-1125803

PATIENT
  Age: 47 Year
  Sex: Female

DRUGS (3)
  1. AVASTIN [Suspect]
     Indication: COLON CANCER
  2. AVASTIN [Suspect]
     Indication: URETERIC STENOSIS
  3. AVASTIN [Suspect]
     Indication: URETERIC STENOSIS

REACTIONS (6)
  - Death [Fatal]
  - Malaise [Unknown]
  - Neutropenia [Unknown]
  - Vomiting [Unknown]
  - Nausea [Unknown]
  - Small intestinal obstruction [Unknown]
